FAERS Safety Report 6094423-5 (Version None)
Quarter: 2009Q1

REPORT INFORMATION
  Report Type: 
  Country: None (occurrence: None)
  Receive Date: 20090226
  Receipt Date: 20090202
  Transmission Date: 20090719
  Serious: No
  Sender: FDA-Public Use
  Company Number: US-BAYER-200910395BCC

PATIENT
  Age: 14 Year
  Sex: Female

DRUGS (1)
  1. FINACEA [Suspect]
     Indication: ACNE
     Route: 061

REACTIONS (3)
  - BURNING SENSATION [None]
  - ERYTHEMA [None]
  - SKIN IRRITATION [None]
